FAERS Safety Report 5485816-5 (Version None)
Quarter: 2007Q4

REPORT INFORMATION
  Report Type: 
  Country: None (occurrence: None)
  Receive Date: 20071015
  Receipt Date: 20071004
  Transmission Date: 20080405
  Serious: Yes (Other)
  Sender: FDA-Public Use
  Company Number: US-JNJFOC-20071001899

PATIENT
  Age: 34 Year
  Sex: Female
  Weight: 55.34 kg

DRUGS (1)
  1. RETIN-A [Suspect]
     Indication: ACNE
     Route: 061

REACTIONS (10)
  - HAIR GROWTH ABNORMAL [None]
  - HEART RATE INCREASED [None]
  - HYPERTHYROIDISM [None]
  - HYPERVITAMINOSIS [None]
  - INSOMNIA [None]
  - MIGRAINE [None]
  - MYALGIA [None]
  - NAIL DISORDER [None]
  - PHOTOSENSITIVITY REACTION [None]
  - SKIN DISCOLOURATION [None]
